FAERS Safety Report 9934171 (Version 1)
Quarter: 2014Q1

REPORT INFORMATION
  Report Type: Spontaneous
  Country: US (occurrence: US)
  Receive Date: 20140228
  Receipt Date: 20140228
  Transmission Date: 20141002
  Serious: Yes (Other)
  Sender: FDA-Public Use
  Company Number: PHEH2014US003705

PATIENT
  Sex: Female

DRUGS (6)
  1. TRILEPTAL [Suspect]
     Dosage: UNK UKN, UNK
  2. BACLOFEN [Suspect]
     Dosage: UNK UKN, UNK
  3. ZANTAC [Suspect]
  4. VITAMIN D [Suspect]
     Dosage: UNK UKN, UNK
  5. METAMUCIL [Suspect]
     Dosage: UNK UKN, UNK
  6. ZOFRAN [Suspect]
     Dosage: UNK UKN, UNK

REACTIONS (8)
  - Grand mal convulsion [Unknown]
  - Partial seizures [Unknown]
  - Crying [Unknown]
  - Communication disorder [Unknown]
  - Anger [Unknown]
  - Abnormal behaviour [Unknown]
  - Vomiting [Unknown]
  - Fatigue [Unknown]
